FAERS Safety Report 21879563 (Version 1)
Quarter: 2023Q1

REPORT INFORMATION
  Report Type: Spontaneous
  Country: NL (occurrence: NL)
  Receive Date: 20230118
  Receipt Date: 20230118
  Transmission Date: 20230417
  Serious: Yes (Other)
  Sender: FDA-Public Use
  Company Number: NL-009507513-2301NLD004871

PATIENT
  Age: 56 Year
  Sex: Male

DRUGS (2)
  1. PEMBROLIZUMAB [Suspect]
     Active Substance: PEMBROLIZUMAB
     Indication: Malignant melanoma
     Dosage: UNK
     Dates: start: 201601
  2. PEMBROLIZUMAB [Suspect]
     Active Substance: PEMBROLIZUMAB
     Dosage: UNK
     Dates: start: 201602

REACTIONS (14)
  - Hepatotoxicity [Unknown]
  - Autoimmune myositis [Unknown]
  - Myasthenia gravis [Unknown]
  - Rhabdomyolysis [Unknown]
  - Ocular hyperaemia [Recovered/Resolved]
  - Eyelid ptosis [Unknown]
  - Muscular weakness [Unknown]
  - Blood creatine phosphokinase increased [Unknown]
  - Blood creatine phosphokinase MB abnormal [Unknown]
  - Troponin abnormal [Unknown]
  - Dyspnoea exertional [Unknown]
  - Dysphonia [Unknown]
  - Dry eye [Recovered/Resolved]
  - Headache [Recovered/Resolved]

NARRATIVE: CASE EVENT DATE: 20160201
